FAERS Safety Report 9587673 (Version 2)
Quarter: 2013Q4

REPORT INFORMATION
  Report Type: Spontaneous
  Country: US (occurrence: US)
  Receive Date: 20131003
  Receipt Date: 20131014
  Transmission Date: 20140711
  Serious: No
  Sender: FDA-Public Use
  Company Number: US-PFIZER INC-2013281590

PATIENT
  Age: 56 Year
  Sex: Female
  Weight: 87.53 kg

DRUGS (4)
  1. PREMPRO [Suspect]
     Indication: HORMONE THERAPY
     Dosage: ^0.625/2.5 MG^, DAILY
     Route: 048
     Dates: start: 2013, end: 2013
  2. SAVELLA [Concomitant]
     Indication: FIBROMYALGIA
     Dosage: 50 MG, DAILY
  3. LEXAPRO [Concomitant]
     Indication: HYPOPHAGIA
     Dosage: 10 MG, DAILY
  4. AMITRIPTYLINE [Concomitant]
     Indication: CENTRAL PAIN SYNDROME
     Dosage: 50 MG, DAILY

REACTIONS (2)
  - Headache [Recovered/Resolved]
  - Intercepted drug dispensing error [Unknown]
